FAERS Safety Report 24213996 (Version 1)
Quarter: 2024Q3

REPORT INFORMATION
  Report Type: Spontaneous
  Country: US (occurrence: None)
  Receive Date: 20240814
  Receipt Date: 20240814
  Transmission Date: 20241016
  Serious: Yes (Life-Threatening, Hospitalization, Disabling)
  Sender: Public
  Company Number: None

PATIENT
  Age: 48 Year
  Sex: Male
  Weight: 96.1 kg

DRUGS (1)
  1. TECARTUS [Suspect]
     Active Substance: BREXUCABTAGENE AUTOLEUCEL
     Indication: Mantle cell lymphoma
     Dosage: ONCE INTRAVENOUS?
     Route: 042
     Dates: start: 20240611

REACTIONS (2)
  - Immune effector cell-associated neurotoxicity syndrome [None]
  - Seizure [None]

NARRATIVE: CASE EVENT DATE: 20240616
